FAERS Safety Report 8090434-9 (Version None)
Quarter: 2012Q1

REPORT INFORMATION
  Report Type: 
  Country: None (occurrence: None)
  Receive Date: 20120129
  Receipt Date: 20111130
  Transmission Date: 20120608
  Serious: No
  Sender: FDA-Public Use
  Company Number: US-ABBOTT-11P-163-0879982-00

PATIENT
  Sex: Female

DRUGS (1)
  1. HUMIRA [Suspect]
     Indication: PSORIATIC ARTHROPATHY
     Dates: start: 20110601

REACTIONS (5)
  - FLUID RETENTION [None]
  - COUGH [None]
  - SINUSITIS [None]
  - NASAL CONGESTION [None]
  - FATIGUE [None]
